FAERS Safety Report 12077897 (Version 2)
Quarter: 2016Q1

REPORT INFORMATION
  Report Type: Spontaneous
  Country: US (occurrence: US)
  Receive Date: 20160215
  Receipt Date: 20160323
  Transmission Date: 20160526
  Serious: Yes (Other)
  Sender: FDA-Public Use
  Company Number: US-009507513-1602USA006566

PATIENT
  Age: 29 Year
  Sex: Female
  Weight: 68.2 kg

DRUGS (1)
  1. KEYTRUDA [Suspect]
     Active Substance: PEMBROLIZUMAB
     Indication: METASTATIC MALIGNANT MELANOMA
     Dosage: UNK
     Dates: start: 20150916

REACTIONS (13)
  - Albumin globulin ratio decreased [Unknown]
  - Malignant neoplasm progression [Unknown]
  - Blood chloride decreased [Unknown]
  - Decreased appetite [Unknown]
  - Alanine aminotransferase increased [Unknown]
  - Blood urea decreased [Unknown]
  - Eosinophil count increased [Unknown]
  - Cough [Unknown]
  - Monocyte count increased [Unknown]
  - Globulins increased [Unknown]
  - Dyspnoea [Unknown]
  - Fatigue [Unknown]
  - Aspartate aminotransferase increased [Unknown]

NARRATIVE: CASE EVENT DATE: 2015
